FAERS Safety Report 9570967 (Version 1)
Quarter: 2013Q3

REPORT INFORMATION
  Report Type: Spontaneous
  Country: US (occurrence: None)
  Receive Date: 20130927
  Receipt Date: 20130927
  Transmission Date: 20140515
  Serious: Yes (Other)
  Sender: FDA-Public Use
  Company Number: None

PATIENT
  Age: 16 None
  Sex: Female

DRUGS (2)
  1. LUVOX CR [Suspect]
     Dosage: 1 CAPSULE (150 MG) DAILY AT BEDTIME 2-3 YEARS
  2. GEODON [Concomitant]

REACTIONS (3)
  - Drug hypersensitivity [None]
  - Rash [None]
  - Arthritis [None]
